FAERS Safety Report 10458364 (Version 1)
Quarter: 2014Q3

REPORT INFORMATION
  Report Type: Spontaneous
  Country: BR (occurrence: BR)
  Receive Date: 20140917
  Receipt Date: 20140917
  Transmission Date: 20150326
  Serious: Yes (Hospitalization, Other)
  Sender: FDA-Public Use
  Company Number: BR-JNJFOC-20140908546

PATIENT
  Sex: Female
  Weight: 91 kg

DRUGS (5)
  1. IMOSEC [Suspect]
     Active Substance: LOPERAMIDE
     Indication: DIARRHOEA
     Route: 065
     Dates: start: 201409
  2. GLIFAGE XR [Concomitant]
     Active Substance: METFORMIN HYDROCHLORIDE
     Indication: GLUCOSE TOLERANCE IMPAIRED
     Route: 065
  3. LOSARTAN [Concomitant]
     Active Substance: LOSARTAN
     Indication: HYPERTENSION
     Route: 065
  4. LEVOTHYROXINE SODIUM. [Concomitant]
     Active Substance: LEVOTHYROXINE SODIUM
     Indication: THYROID DISORDER
     Route: 065
  5. IMOSEC [Suspect]
     Active Substance: LOPERAMIDE
     Route: 065

REACTIONS (5)
  - Anaemia [Recovered/Resolved]
  - Urinary tract infection [Recovering/Resolving]
  - Asthenia [Recovered/Resolved]
  - Convulsion [Recovering/Resolving]
  - Drug ineffective [Unknown]
